FAERS Safety Report 19921243 (Version 1)
Quarter: 2021Q4

REPORT INFORMATION
  Report Type: Spontaneous
  Country: US (occurrence: US)
  Receive Date: 20211005
  Receipt Date: 20211005
  Transmission Date: 20220303
  Serious: Yes (Other)
  Sender: FDA-Public Use
  Company Number: US-GLENMARK PHARMACEUTICALS-2021GMK068133

PATIENT

DRUGS (1)
  1. ONDANSETRON [Suspect]
     Active Substance: ONDANSETRON
     Indication: Nausea
     Dosage: 4MG TO 8MG (ONE TO TWO TABLETS PER DAY)
     Route: 048

REACTIONS (6)
  - Blindness [Unknown]
  - Illness [Unknown]
  - Nausea [Unknown]
  - Tremor [Unknown]
  - Rebound effect [Unknown]
  - Drug effective for unapproved indication [Unknown]
